FAERS Safety Report 15820834 (Version 1)
Quarter: 2019Q1

REPORT INFORMATION
  Report Type: Report from Study
  Country: ZA (occurrence: ZA)
  Receive Date: 20190114
  Receipt Date: 20190114
  Transmission Date: 20190417
  Serious: Yes (Hospitalization)
  Sender: FDA-Public Use
  Company Number: ZA-SAKK-2018SA325380AA

PATIENT
  Age: 61 Year
  Sex: Male

DRUGS (2)
  1. NO STUDY DRUG GIVEN [Suspect]
     Active Substance: UNSPECIFIED INGREDIENT
     Dosage: UNK
  2. TOUJEO [Suspect]
     Active Substance: INSULIN GLARGINE
     Dosage: 40 U, HS
     Dates: start: 20181102

REACTIONS (3)
  - Haematuria [Unknown]
  - Chromaturia [Unknown]
  - Hydronephrosis [Unknown]
